FAERS Safety Report 23889805 (Version 1)
Quarter: 2024Q2

REPORT INFORMATION
  Report Type: Spontaneous
  Country: CN (occurrence: CN)
  Receive Date: 20240523
  Receipt Date: 20240523
  Transmission Date: 20240716
  Serious: Yes (Hospitalization, Other)
  Sender: FDA-Public Use
  Company Number: CN-PFIZER INC-PV202400066685

PATIENT
  Age: 14 Year
  Sex: Male
  Weight: 64 kg

DRUGS (2)
  1. CYTARABINE [Suspect]
     Active Substance: CYTARABINE
     Indication: Acute lymphocytic leukaemia
     Dosage: 5 G, 2X/DAY
     Route: 041
     Dates: start: 20240509, end: 20240510
  2. DEXTROSE [Concomitant]
     Active Substance: DEXTROSE\DEXTROSE MONOHYDRATE
     Indication: Vehicle solution use
     Dosage: 500 ML, 2X/DAY
     Route: 041
     Dates: start: 20240509, end: 20240510

REACTIONS (2)
  - Oesophageal haemorrhage [Recovering/Resolving]
  - Gastrointestinal mucosal exfoliation [Recovering/Resolving]

NARRATIVE: CASE EVENT DATE: 20240513
